FAERS Safety Report 4790305-7 (Version None)
Quarter: 2005Q4

REPORT INFORMATION
  Report Type: 
  Country: None (occurrence: None)
  Receive Date: 20051005
  Receipt Date: 20050920
  Transmission Date: 20060501
  Serious: Yes (Other)
  Sender: FDA-Public Use
  Company Number: USA041082514

PATIENT
  Age: 8 Year
  Sex: Male
  Weight: 32 kg

DRUGS (4)
  1. STRATTERA [Suspect]
     Indication: ATTENTION DEFICIT/HYPERACTIVITY DISORDER
     Dosage: 40 MG DAY
     Dates: start: 20040916
  2. ZOLOFT [Concomitant]
  3. FLUOXETINE [Concomitant]
  4. MIRALAX [Concomitant]

REACTIONS (14)
  - ANXIETY [None]
  - APATHY [None]
  - DISTURBANCE IN ATTENTION [None]
  - DRUG INEFFECTIVE [None]
  - DYSKINESIA [None]
  - EMOTIONAL DISORDER [None]
  - EYE MOVEMENT DISORDER [None]
  - FATIGUE [None]
  - HEADACHE [None]
  - HYPERHIDROSIS [None]
  - INSOMNIA [None]
  - IRRITABILITY [None]
  - MOOD ALTERED [None]
  - PERSONALITY CHANGE [None]
